FAERS Safety Report 6383383-5 (Version None)
Quarter: 2009Q4

REPORT INFORMATION
  Report Type: 
  Country: None (occurrence: None)
  Receive Date: 20091001
  Receipt Date: 20070531
  Transmission Date: 20100525
  Serious: Yes (Other)
  Sender: FDA-Public Use
  Company Number: US-ASTRAZENECA-2006UW22412

PATIENT
  Age: 59 Year
  Sex: Female
  Weight: 64 kg

DRUGS (18)
  1. SEROQUEL [Suspect]
     Indication: BIPOLAR DISORDER
     Dosage: 250 TO 300MG
     Route: 048
     Dates: start: 20050101
  2. SEROQUEL [Suspect]
     Indication: SCHIZOPHRENIA
     Dosage: 250 TO 300MG
     Route: 048
     Dates: start: 20050101
  3. SEROQUEL [Suspect]
     Indication: DEPRESSION
     Dosage: 250 TO 300MG
     Route: 048
     Dates: start: 20050101
  4. SEROQUEL [Suspect]
     Dosage: STRENGTH - 100 MG, 200 MG, 300 MG
     Route: 048
     Dates: start: 20050606
  5. SEROQUEL [Suspect]
     Dosage: STRENGTH - 100 MG, 200 MG, 300 MG
     Route: 048
     Dates: start: 20050606
  6. SEROQUEL [Suspect]
     Dosage: STRENGTH - 100 MG, 200 MG, 300 MG
     Route: 048
     Dates: start: 20050606
  7. WEIGHT CONTROL MEDICATION [Concomitant]
  8. RISPERDAL [Concomitant]
     Dosage: STRENGTH - 2 MG, 4 MG, DOSE - 4 MG AT BEDTIME
     Dates: start: 20050606
  9. FUROSEMIDE [Concomitant]
     Dates: start: 20050606
  10. CARBATROL [Concomitant]
     Dates: start: 20050606
  11. AMITRIPTYLINE [Concomitant]
     Dates: start: 20050616
  12. LISINOPRIL [Concomitant]
     Dates: start: 20050629
  13. ALPRAZOLAM [Concomitant]
     Dates: start: 20050702
  14. ZOCOR [Concomitant]
     Route: 048
     Dates: start: 20060522
  15. INDOCIN [Concomitant]
     Dosage: 50 - 150 MG DAILY
     Dates: start: 20060522
  16. KLONOPIN [Concomitant]
     Indication: ANXIETY
     Dosage: STRENGTH - 0.25 MG, 0.5 MG, 1 MG, 2.25 MG, 5 MG, DOSE - 0.25 MG TWICE A DAY AS REQUIRED
     Dates: start: 20060522
  17. RESTORIL [Concomitant]
     Indication: INSOMNIA
     Dosage: 15 MG AT BEDTIME AS REQUIRED
     Dates: start: 20060522
  18. LAMICTAL [Concomitant]
     Dates: start: 20060524

REACTIONS (3)
  - DIABETES MELLITUS [None]
  - HYPOGLYCAEMIA [None]
  - NEUROPATHY PERIPHERAL [None]
